FAERS Safety Report 7516702-4 (Version None)
Quarter: 2011Q2

REPORT INFORMATION
  Report Type: 
  Country: None (occurrence: None)
  Receive Date: 20110601
  Receipt Date: 20110519
  Transmission Date: 20111010
  Serious: Yes (Other)
  Sender: FDA-Public Use
  Company Number: AR-AMGEN-ARGSP2011026744

PATIENT
  Sex: Female

DRUGS (2)
  1. ADALIMUMAB [Concomitant]
     Dosage: UNK
     Dates: end: 20110101
  2. ENBREL [Suspect]
     Indication: PRODUCT USED FOR UNKNOWN INDICATION
     Dosage: UNK
     Dates: end: 20100101

REACTIONS (3)
  - HIP SURGERY [None]
  - OEDEMA PERIPHERAL [None]
  - PAIN [None]
